FAERS Safety Report 25491684 (Version 1)
Quarter: 2025Q2

REPORT INFORMATION
  Report Type: Spontaneous
  Country: US (occurrence: US)
  Receive Date: 20250630
  Receipt Date: 20250630
  Transmission Date: 20250716
  Serious: No
  Sender: ELI LILLY AND COMPANY
  Company Number: US-ELI_LILLY_AND_COMPANY-US202506006825

PATIENT
  Age: 42 Year
  Sex: Male
  Weight: 80 kg

DRUGS (20)
  1. ZEPBOUND [Interacting]
     Active Substance: TIRZEPATIDE
     Indication: Product used for unknown indication
     Route: 065
     Dates: end: 20250424
  2. MOUNJARO [Suspect]
     Active Substance: TIRZEPATIDE
     Indication: Product used for unknown indication
     Route: 065
  3. MOUNJARO [Suspect]
     Active Substance: TIRZEPATIDE
     Indication: Product used for unknown indication
     Route: 065
  4. MOUNJARO [Suspect]
     Active Substance: TIRZEPATIDE
     Indication: Product used for unknown indication
     Route: 065
  5. MOUNJARO [Suspect]
     Active Substance: TIRZEPATIDE
     Indication: Product used for unknown indication
     Route: 065
  6. LUMRYZ [Interacting]
     Active Substance: SODIUM OXYBATE
     Indication: Narcolepsy
     Dosage: 7.5 G, DAILY
     Route: 048
     Dates: start: 202411
  7. LUMRYZ [Interacting]
     Active Substance: SODIUM OXYBATE
     Dosage: 9 G, DAILY
     Route: 048
  8. WAKIX [Concomitant]
     Active Substance: PITOLISANT HYDROCHLORIDE
     Indication: Product used for unknown indication
  9. ACETYLCYSTEINE [Concomitant]
     Active Substance: ACETYLCYSTEINE
     Indication: Product used for unknown indication
  10. L-METHYLFOLATE CALCIUM [CALCIUM LEVOMEFOLATE] [Concomitant]
     Indication: Product used for unknown indication
  11. CREATINE [Concomitant]
     Active Substance: CREATINE
     Indication: Product used for unknown indication
  12. FISH OIL [Concomitant]
     Active Substance: FISH OIL
     Indication: Product used for unknown indication
  13. WELLBUTRIN SR [Concomitant]
     Active Substance: BUPROPION HYDROCHLORIDE
     Indication: Product used for unknown indication
  14. VITAMIN B12 [Concomitant]
     Active Substance: CYANOCOBALAMIN
     Indication: Product used for unknown indication
  15. MAGNESIUM [Concomitant]
     Active Substance: MAGNESIUM
     Indication: Product used for unknown indication
  16. NALTREXONE HYDROCHLORIDE [Concomitant]
     Active Substance: NALTREXONE HYDROCHLORIDE
     Indication: Product used for unknown indication
  17. VITAMIN D2 [Concomitant]
     Active Substance: ERGOCALCIFEROL
     Indication: Product used for unknown indication
  18. MODAFINIL [Concomitant]
     Active Substance: MODAFINIL
     Indication: Product used for unknown indication
  19. VITAMIN K 2 [Concomitant]
     Indication: Product used for unknown indication
  20. CLOMID [Concomitant]
     Active Substance: CLOMIPHENE CITRATE
     Indication: Product used for unknown indication

REACTIONS (19)
  - Insomnia [Recovering/Resolving]
  - Sleep disorder [Recovering/Resolving]
  - Palpitations [Unknown]
  - Middle insomnia [Recovering/Resolving]
  - Micturition urgency [Unknown]
  - White blood cell count increased [Unknown]
  - Gastroenteritis viral [Unknown]
  - Confusional arousal [Unknown]
  - Hyperhidrosis [Unknown]
  - Confusional state [Unknown]
  - Disorientation [Unknown]
  - Parasomnia [Unknown]
  - Memory impairment [Unknown]
  - Drug interaction [Unknown]
  - Anxiety [Unknown]
  - Feeling abnormal [Unknown]
  - Somnolence [Unknown]
  - Dry mouth [Unknown]
  - Heart rate increased [Unknown]
